FAERS Safety Report 4437338-8 (Version None)
Quarter: 2004Q3

REPORT INFORMATION
  Report Type: 
  Country: None (occurrence: None)
  Receive Date: 20040726
  Receipt Date: 20040420
  Transmission Date: 20050211
  Serious: No
  Sender: FDA-Public Use
  Company Number: USA040363223

PATIENT
  Age: 82 Year
  Sex: Female
  Weight: 46 kg

DRUGS (3)
  1. FORTEO [Suspect]
     Indication: OSTEOPOROSIS
     Dosage: 20 UG/1 DAY
     Dates: start: 20040325
  2. CIPRO [Concomitant]
  3. GENOXIN (NAPROXEN) [Concomitant]

REACTIONS (4)
  - ACCIDENTAL OVERDOSE [None]
  - DIZZINESS [None]
  - INJECTION SITE HAEMORRHAGE [None]
  - OVERDOSE [None]
